FAERS Safety Report 13981653 (Version 1)
Quarter: 2017Q3

REPORT INFORMATION
  Report Type: Spontaneous
  Country: US (occurrence: US)
  Receive Date: 20170918
  Receipt Date: 20170918
  Transmission Date: 20171128
  Serious: No
  Sender: FDA-Public Use
  Company Number: US-BION-004944

PATIENT
  Age: 58 Year
  Sex: Female
  Weight: 67.13 kg

DRUGS (1)
  1. CETIRIZINE/CETIRIZINE HYDROCHLORIDE [Suspect]
     Active Substance: CETIRIZINE HYDROCHLORIDE
     Indication: MULTIPLE ALLERGIES
     Dosage: 1 DF BD
     Route: 048
     Dates: start: 20160921

REACTIONS (2)
  - Extra dose administered [None]
  - Incorrect dose administered [Unknown]

NARRATIVE: CASE EVENT DATE: 20160921
